FAERS Safety Report 8177352-2 (Version None)
Quarter: 2012Q1

REPORT INFORMATION
  Report Type: 
  Country: None (occurrence: None)
  Receive Date: 20120301
  Receipt Date: 20120221
  Transmission Date: 20120608
  Serious: Yes (Hospitalization)
  Sender: FDA-Public Use
  Company Number: US-BAYER-2011-070527

PATIENT
  Age: 32 Year
  Sex: Female

DRUGS (8)
  1. YASMIN [Suspect]
  2. ADVAIR DISKUS 100/50 [Concomitant]
     Dosage: 1 PUFF(S), BID
     Route: 045
  3. ALBUTEROL SULFATE [Concomitant]
     Indication: DYSPNOEA
     Dosage: 2 PUFF(S), Q4HR
     Route: 045
  4. FEXOFENADINE [Concomitant]
     Indication: MULTIPLE ALLERGIES
     Dosage: 60 MG, BID
     Route: 048
  5. YAZ [Suspect]
  6. ALBUTEROL SULFATE [Concomitant]
     Indication: WHEEZING
  7. FLONASE [Concomitant]
     Indication: NASAL CONGESTION
     Dosage: 50 MCG/24HR, QD
     Route: 045
  8. DROSPIRENONE AND ETHINYL ESTRADIOL [Suspect]

REACTIONS (7)
  - INJURY [None]
  - PAIN [None]
  - ANHEDONIA [None]
  - GENERAL PHYSICAL HEALTH DETERIORATION [None]
  - EMOTIONAL DISTRESS [None]
  - INTRACRANIAL VENOUS SINUS THROMBOSIS [None]
  - ANXIETY [None]
